FAERS Safety Report 5381195-2 (Version None)
Quarter: 2007Q3

REPORT INFORMATION
  Report Type: 
  Country: None (occurrence: None)
  Receive Date: 20070706
  Receipt Date: 20070629
  Transmission Date: 20080115
  Serious: Yes (Other)
  Sender: FDA-Public Use
  Company Number: JP-MERCK-0706USA01764

PATIENT
  Age: 67 Year
  Sex: Male

DRUGS (6)
  1. PROPECIA [Suspect]
     Indication: MALE PATTERN BALDNESS
     Route: 048
     Dates: start: 20070308, end: 20070517
  2. NORVASC [Concomitant]
     Route: 048
  3. COVERSYL (PERINDOPRIL ERBUMINE) [Concomitant]
     Route: 048
  4. MEILAX [Concomitant]
     Route: 048
  5. FLIVAS [Concomitant]
     Route: 048
  6. BIOFERMIN [Concomitant]
     Route: 048

REACTIONS (4)
  - ARTHRALGIA [None]
  - ERECTILE DYSFUNCTION [None]
  - MYALGIA [None]
  - STOMACH DISCOMFORT [None]
